FAERS Safety Report 8480960 (Version 4)
Quarter: 2012Q4

REPORT INFORMATION
  Report Type: Report from Study
  Country: AR (occurrence: AR)
  Receive Date: 20120328
  Receipt Date: 20120919
  Transmission Date: 20130627
  Serious: Yes (Hospitalization)
  Sender: FDA-Public Use
  Company Number: AR-BRISTOL-MYERS SQUIBB COMPANY-16474041

PATIENT
  Age: 64 Year
  Sex: Male

DRUGS (8)
  1. PLACEBO [Suspect]
     Indication: TYPE 2 DIABETES MELLITUS
     Route: 048
     Dates: start: 20101101
  2. METFORMIN HCL [Suspect]
     Indication: TYPE 2 DIABETES MELLITUS
     Route: 048
  3. GLIBENCLAMIDE [Suspect]
     Indication: TYPE 2 DIABETES MELLITUS
     Route: 048
  4. LANTUS [Suspect]
     Indication: TYPE 2 DIABETES MELLITUS
     Dosage: Interrupted on 31Out2010 restarted on 01Nov2010 21 mg
     Dates: start: 20100415
  5. ASPIRIN [Concomitant]
     Indication: MYOCARDIAL ISCHAEMIA
  6. ATORVASTATIN [Concomitant]
     Indication: DYSLIPIDAEMIA
     Route: 048
  7. ENALAPRIL [Concomitant]
     Indication: HYPERTENSION
     Route: 048
  8. CARVEDILOL [Concomitant]
     Indication: MYOCARDIAL ISCHAEMIA
     Route: 048

REACTIONS (1)
  - Hypoglycaemic seizure [Recovered/Resolved]
